FAERS Safety Report 15668323 (Version 1)
Quarter: 2018Q4

REPORT INFORMATION
  Report Type: Report from Study
  Country: MX (occurrence: MX)
  Receive Date: 20181129
  Receipt Date: 20181129
  Transmission Date: 20190205
  Serious: Yes (Other)
  Sender: FDA-Public Use
  Company Number: PHHY2018MX165808

PATIENT
  Sex: Male
  Weight: 82 kg

DRUGS (10)
  1. GALVUS MET [Suspect]
     Active Substance: METFORMIN HYDROCHLORIDE\VILDAGLIPTIN
     Dosage: 2 DF, QD (850 MG METFORMIN, 50 MG VILDAGLITPIN), 2 OR MORE YEARS AGO
     Route: 048
  2. GALVUS MET [Suspect]
     Active Substance: METFORMIN HYDROCHLORIDE\VILDAGLIPTIN
     Dosage: 1 DF, QD (1000 MG METFORMIN, 50 MG VILDAGLITPIN)
     Route: 048
  3. EXFORGE HCT [Suspect]
     Active Substance: AMLODIPINE BESYLATE\HYDROCHLOROTHIAZIDE\VALSARTAN
     Indication: HYPERTENSION
     Dosage: 1 DF, QD (5 MG AMLODPINE, 12.5 MG HYDROCHLORTHIAZIDE, 160 MG VALSARTAN)
     Route: 048
  4. METFORMIN [Concomitant]
     Active Substance: METFORMIN HYDROCHLORIDE
     Indication: DIABETES MELLITUS
     Dosage: 850 MG, UNK
     Route: 065
  5. IRBESARTAN. [Concomitant]
     Active Substance: IRBESARTAN
     Indication: BLOOD PRESSURE INCREASED
     Dosage: 1 DF, QD, 1 YEAR AGO APPROXIMATELY AND STOPPED 5 WEEKS AGO
     Route: 048
  6. GALVUS MET [Suspect]
     Active Substance: METFORMIN HYDROCHLORIDE\VILDAGLIPTIN
     Dosage: 2 DF, (500 MG METFORMIN, 50 MG VILDAGLITPIN)
     Route: 048
  7. LOSARTAN. [Concomitant]
     Active Substance: LOSARTAN
     Indication: BLOOD PRESSURE INCREASED
     Dosage: 2 DF, QD, 4 YEARS AGO APPROXIMATELY AND STOPPED 1 YEAR AGO APPROXIAMTELY
     Route: 048
  8. GALVUS MET [Suspect]
     Active Substance: METFORMIN HYDROCHLORIDE\VILDAGLIPTIN
     Indication: DIABETES MELLITUS
     Dosage: 1 DF, (500 MG METFORMIN, 50 MG VILDAGLITPIN)
     Route: 048
  9. GALVUS MET [Suspect]
     Active Substance: METFORMIN HYDROCHLORIDE\VILDAGLIPTIN
     Dosage: 1 DF, QD (850 MG METFORMIN, 50 MG VILDAGLITPIN), 7 OR 8 YEARS AGO
     Route: 048
  10. GALVUS MET [Suspect]
     Active Substance: METFORMIN HYDROCHLORIDE\VILDAGLIPTIN
     Dosage: 2 DF, QD (1000 MG METFORMIN, 50 MG VILDAGLITPIN),
     Route: 048

REACTIONS (1)
  - Infarction [Unknown]
